FAERS Safety Report 5931676-5 (Version None)
Quarter: 2008Q4

REPORT INFORMATION
  Report Type: 
  Country: None (occurrence: None)
  Receive Date: 20081027
  Receipt Date: 20081020
  Transmission Date: 20090506
  Serious: Yes (Death, Other)
  Sender: FDA-Public Use
  Company Number: US-CELGENEUS-163-20785-08101299

PATIENT

DRUGS (4)
  1. THALOMID [Suspect]
     Indication: MYELODYSPLASTIC SYNDROME
     Dosage: 50-100MG
     Route: 048
  2. THALOMID [Suspect]
  3. AZACYTIDINE [Suspect]
     Indication: MYELODYSPLASTIC SYNDROME
     Route: 058
  4. AZACYTIDINE [Suspect]
     Indication: ACUTE MYELOID LEUKAEMIA

REACTIONS (17)
  - ABDOMINAL PAIN [None]
  - ACUTE ABDOMEN [None]
  - ATRIAL FIBRILLATION [None]
  - BRADYCARDIA [None]
  - CLOSTRIDIAL INFECTION [None]
  - DEATH [None]
  - DEEP VEIN THROMBOSIS [None]
  - DIARRHOEA [None]
  - GASTROINTESTINAL INFECTION [None]
  - HEPATIC MASS [None]
  - NEUROPATHY PERIPHERAL [None]
  - NEUTROPENIA [None]
  - PERICARDITIS [None]
  - PNEUMONIA [None]
  - PULMONARY EMBOLISM [None]
  - PYREXIA [None]
  - SUBARACHNOID HAEMORRHAGE [None]
